FAERS Safety Report 8424318-0 (Version None)
Quarter: 2012Q2

REPORT INFORMATION
  Report Type: 
  Country: None (occurrence: None)
  Receive Date: 20120608
  Receipt Date: 20111223
  Transmission Date: 20120825
  Serious: No
  Sender: FDA-Public Use
  Company Number: US-ASTRAZENECA-2011SE67426

PATIENT
  Age: 68 Year
  Sex: Female
  Weight: 149.7 kg

DRUGS (18)
  1. METFORMIN HYDROCHLORIDE [Concomitant]
  2. CELEBREX [Concomitant]
  3. TIZANIDINE [Concomitant]
  4. CLONAZEPAM [Concomitant]
  5. WARFARIN SODIUM [Concomitant]
  6. SYMBICORT [Suspect]
     Indication: ASTHMA
     Dosage: 160 MCG/4.5 MCG 2 PUFFS TWICE A DAY
     Route: 055
  7. ALBUTEROL [Concomitant]
  8. HYDROCHLOROTHIAZDE TAB [Concomitant]
  9. NEXIUM [Suspect]
     Indication: GASTROOESOPHAGEAL REFLUX DISEASE
     Dosage: TWICE A DAY
     Route: 048
  10. AMIODARONE HCL [Concomitant]
  11. POTASSIUM CITRATE [Concomitant]
     Indication: NEPHROLITHIASIS
  12. ATENOLOL [Concomitant]
  13. DELTIAZEM [Concomitant]
  14. PROPRANOLOL [Concomitant]
     Indication: ATRIAL FIBRILLATION
  15. PULMICORT FLEXHALER [Suspect]
     Route: 055
  16. ZANTAC [Concomitant]
  17. LEVOTHYROXINE SODIUM [Concomitant]
     Indication: THYROID DISORDER
  18. VITAMIN TAB [Concomitant]

REACTIONS (9)
  - MALAISE [None]
  - PHARYNGEAL DISORDER [None]
  - INCORRECT DOSE ADMINISTERED BY DEVICE [None]
  - GASTROOESOPHAGEAL REFLUX DISEASE [None]
  - DRUG INEFFECTIVE [None]
  - DRUG DOSE OMISSION [None]
  - INAPPROPRIATE SCHEDULE OF DRUG ADMINISTRATION [None]
  - ASTHMA [None]
  - ASPIRATION [None]
